FAERS Safety Report 25580637 (Version 1)
Quarter: 2025Q3

REPORT INFORMATION
  Report Type: Report from Study
  Country: US (occurrence: US)
  Receive Date: 20250718
  Receipt Date: 20250718
  Transmission Date: 20251021
  Serious: Yes (Hospitalization)
  Sender: SERVIER
  Company Number: US-SERVIER-S25010373

PATIENT

DRUGS (2)
  1. TIBSOVO [Suspect]
     Active Substance: IVOSIDENIB
     Indication: Graft versus host disease
     Dosage: 500 MG, QD
     Route: 048
     Dates: start: 20250426
  2. REZUROCK [Concomitant]
     Active Substance: BELUMOSUDIL
     Indication: Graft versus host disease
     Dosage: 200 MG, QD
     Route: 048
     Dates: start: 20230808

REACTIONS (3)
  - Haematological infection [Unknown]
  - Neutropenia [Unknown]
  - Hypertension [Unknown]

NARRATIVE: CASE EVENT DATE: 20250701
